FAERS Safety Report 18606807 (Version 1)
Quarter: 2020Q4

REPORT INFORMATION
  Report Type: Spontaneous
  Country: NL (occurrence: NL)
  Receive Date: 20201211
  Receipt Date: 20201211
  Transmission Date: 20210114
  Serious: Yes (Other)
  Sender: FDA-Public Use
  Company Number: NL-MYLANLABS-2020M1099201

PATIENT
  Age: 71 Year
  Sex: Male

DRUGS (14)
  1. SULPHAMETHOXAZOLE/TRIMETHOPRIM [Suspect]
     Active Substance: SULFAMETHOXAZOLE\TRIMETHOPRIM
     Indication: CYSTITIS KLEBSIELLA
     Dosage: UNK
  2. AUGMENTIN [Suspect]
     Active Substance: AMOXICILLIN\CLAVULANATE POTASSIUM
     Indication: PROSTATITIS
  3. CIPROFLOXACIN. [Suspect]
     Active Substance: CIPROFLOXACIN
     Indication: PROSTATITIS
     Dosage: UNK
  4. FOSFOMYCINE [Suspect]
     Active Substance: FOSFOMYCIN
     Indication: CYSTITIS KLEBSIELLA
     Dosage: UNK
  5. TRIMETHOPRIM. [Suspect]
     Active Substance: TRIMETHOPRIM
     Indication: PROSTATITIS
  6. AUGMENTIN [Suspect]
     Active Substance: AMOXICILLIN\CLAVULANATE POTASSIUM
     Indication: CYSTITIS KLEBSIELLA
     Dosage: 625 MILLIGRAM, TID SEVERAL MONTHS
  7. PIPERACILLIN/TAZOBACTAM [Suspect]
     Active Substance: PIPERACILLIN SODIUM\TAZOBACTAM SODIUM
     Indication: PROSTATITIS
  8. NITROFURANTOIN. [Suspect]
     Active Substance: NITROFURANTOIN
     Indication: CYSTITIS KLEBSIELLA
     Dosage: UNK
  9. SULPHAMETHOXAZOLE/TRIMETHOPRIM [Suspect]
     Active Substance: SULFAMETHOXAZOLE\TRIMETHOPRIM
     Indication: PROSTATITIS
  10. NITROFURANTOIN. [Suspect]
     Active Substance: NITROFURANTOIN
     Indication: PROSTATITIS
  11. TRIMETHOPRIM. [Suspect]
     Active Substance: TRIMETHOPRIM
     Indication: CYSTITIS KLEBSIELLA
     Dosage: UNK
  12. CIPROFLOXACIN. [Suspect]
     Active Substance: CIPROFLOXACIN
     Indication: CYSTITIS KLEBSIELLA
  13. PIPERACILLIN/TAZOBACTAM [Suspect]
     Active Substance: PIPERACILLIN SODIUM\TAZOBACTAM SODIUM
     Indication: CYSTITIS KLEBSIELLA
     Dosage: 4500 MILLIGRAM, TID FOR SEVERAL DAYS
     Route: 042
  14. FOSFOMYCINE [Suspect]
     Active Substance: FOSFOMYCIN
     Indication: PROSTATITIS

REACTIONS (1)
  - Drug ineffective [Recovering/Resolving]
